FAERS Safety Report 5547259-5 (Version None)
Quarter: 2007Q4

REPORT INFORMATION
  Report Type: 
  Country: None (occurrence: None)
  Receive Date: 20071211
  Receipt Date: 20071207
  Transmission Date: 20080405
  Serious: Yes (Other)
  Sender: FDA-Public Use
  Company Number: B0498591A

PATIENT
  Age: 64 Year
  Sex: Male
  Weight: 70.7 kg

DRUGS (5)
  1. CLENIL [Suspect]
     Indication: ASTHMA
     Route: 055
     Dates: start: 20071008, end: 20071008
  2. ASPIRIN [Concomitant]
     Indication: CARDIOVASCULAR DISORDER
     Route: 048
     Dates: start: 20020101
  3. BECOTIDE [Concomitant]
     Indication: ASTHMA
     Route: 055
     Dates: start: 20020101, end: 20071007
  4. ALBUTEROL [Concomitant]
     Indication: ASTHMA
     Route: 055
     Dates: start: 20020101
  5. VERAPAMIL [Concomitant]
     Indication: CARDIOVASCULAR DISORDER
     Route: 048
     Dates: start: 20020101

REACTIONS (3)
  - CARDIAC FIBRILLATION [None]
  - HYPERHIDROSIS [None]
  - TACHYCARDIA [None]
